FAERS Safety Report 5474084-6 (Version None)
Quarter: 2007Q4

REPORT INFORMATION
  Report Type: 
  Country: None (occurrence: None)
  Receive Date: 20071002
  Receipt Date: 20070920
  Transmission Date: 20080405
  Serious: Yes (Other)
  Sender: FDA-Public Use
  Company Number: PHBS2007NZ15304

PATIENT
  Age: 30 Year
  Sex: Female

DRUGS (1)
  1. CLOZARIL [Suspect]
     Dosage: 300 MG, UNK
     Dates: start: 20070706

REACTIONS (4)
  - BLOOD TEST ABNORMAL [None]
  - FALL [None]
  - LICE INFESTATION [None]
  - SHIFT TO THE LEFT [None]
